FAERS Safety Report 8531732-1 (Version None)
Quarter: 2012Q3

REPORT INFORMATION
  Report Type: 
  Country: None (occurrence: None)
  Receive Date: 20120711
  Receipt Date: 20120625
  Transmission Date: 20120928
  Serious: Yes (Other)
  Sender: FDA-Public Use
  Company Number: 2012MA007919

PATIENT
  Age: 19 Year
  Sex: Male

DRUGS (3)
  1. RISPERIDONE [Suspect]
     Indication: OBSESSIVE-COMPULSIVE DISORDER
     Dosage: 3 MG, QD
  2. FLUVOXAMINE MALEATE [Suspect]
     Indication: OBSESSIVE-COMPULSIVE DISORDER
     Dosage: 50 MG, QD
  3. PAROXETINE [Concomitant]

REACTIONS (2)
  - GYNAECOMASTIA [None]
  - GALACTORRHOEA [None]
